FAERS Safety Report 8101451-4 (Version None)
Quarter: 2012Q1

REPORT INFORMATION
  Report Type: 
  Country: None (occurrence: None)
  Receive Date: 20120129
  Receipt Date: 20111010
  Transmission Date: 20120608
  Serious: No
  Sender: FDA-Public Use
  Company Number: US-ABBOTT-11P-163-0862974-00

PATIENT
  Sex: Female
  Weight: 79.45 kg

DRUGS (8)
  1. OMEPRAZOLE [Concomitant]
     Indication: GASTRIC DISORDER
  2. TOPROL-XL [Concomitant]
     Indication: PALPITATIONS
  3. BENAZEPRIL HYDROCHLORIDE [Concomitant]
     Indication: BLOOD PRESSURE
  4. METFORMIN HCL [Concomitant]
     Indication: DIABETES MELLITUS
  5. LEFLUNOMIDE [Concomitant]
     Indication: RHEUMATOID ARTHRITIS
  6. LEVOTHYROXINE SODIUM [Concomitant]
     Indication: HYPOTHYROIDISM
  7. HUMIRA [Suspect]
     Indication: RHEUMATOID ARTHRITIS
     Dates: start: 20110921
  8. OMEPRAZOLE [Concomitant]
     Indication: PROPHYLAXIS

REACTIONS (3)
  - LIP SWELLING [None]
  - OROPHARYNGEAL BLISTERING [None]
  - BLEPHAROSPASM [None]
